FAERS Safety Report 19929511 (Version 3)
Quarter: 2021Q4

REPORT INFORMATION
  Report Type: Spontaneous
  Country: JP (occurrence: JP)
  Receive Date: 20211007
  Receipt Date: 20211110
  Transmission Date: 20220304
  Serious: Yes (Death, Other)
  Sender: FDA-Public Use
  Company Number: JP-PFIZER INC-202101276662

PATIENT
  Age: 79 Year
  Sex: Female
  Weight: 41.8 kg

DRUGS (1)
  1. LORBRENA [Suspect]
     Active Substance: LORLATINIB
     Indication: Non-small cell lung cancer
     Dosage: 100 MG, DAILY
     Dates: start: 20190626, end: 20190703

REACTIONS (2)
  - Death [Fatal]
  - Neoplasm progression [Unknown]
